FAERS Safety Report 16523026 (Version 1)
Quarter: 2019Q3

REPORT INFORMATION
  Report Type: Spontaneous
  Country: GB (occurrence: GB)
  Receive Date: 20190702
  Receipt Date: 20190702
  Transmission Date: 20191004
  Serious: Yes (Other)
  Sender: FDA-Public Use
  Company Number: GB-MYLANLABS-2018M1006889

PATIENT
  Age: 44 Year
  Sex: Male

DRUGS (1)
  1. CLOZARIL [Suspect]
     Active Substance: CLOZAPINE
     Indication: PRODUCT USED FOR UNKNOWN INDICATION
     Dosage: UNK
     Route: 048
     Dates: start: 20090227

REACTIONS (7)
  - Lymphocyte count increased [Unknown]
  - Leukocytosis [Unknown]
  - Differential white blood cell count abnormal [Not Recovered/Not Resolved]
  - Neutrophilia [Unknown]
  - Haemoglobin decreased [Unknown]
  - Haematocrit increased [Unknown]
  - Thrombocytopenia [Unknown]

NARRATIVE: CASE EVENT DATE: 20180123
